FAERS Safety Report 5938128-7 (Version None)
Quarter: 2008Q4

REPORT INFORMATION
  Report Type: 
  Country: None (occurrence: None)
  Receive Date: 20081031
  Receipt Date: 20081025
  Transmission Date: 20090506
  Serious: No
  Sender: FDA-Public Use
  Company Number: US-B.I. PHARMACEUTICALS,INC./RIDGEFIELD-2008-BP-16357BP

PATIENT
  Sex: Female

DRUGS (7)
  1. ZANTAC 150 [Suspect]
     Indication: HIATUS HERNIA
     Dosage: 150MG
     Route: 048
     Dates: start: 20081001
  2. TOPROL-XL [Concomitant]
     Indication: HYPERTENSION
  3. NORVASC [Concomitant]
     Indication: HYPERTENSION
  4. HYDRALAZINE HCL [Concomitant]
     Indication: HYPERTENSION
  5. CITRUCEL [Concomitant]
  6. VITAMIN FOR EYES [Concomitant]
     Indication: EYE DISORDER
  7. ASPIRIN [Concomitant]

REACTIONS (1)
  - DIARRHOEA [None]
